FAERS Safety Report 19991296 (Version 1)
Quarter: 2021Q4

REPORT INFORMATION
  Report Type: Spontaneous
  Country: US (occurrence: US)
  Receive Date: 20211025
  Receipt Date: 20211025
  Transmission Date: 20220303
  Serious: No
  Sender: FDA-Public Use
  Company Number: None

PATIENT
  Sex: Female

DRUGS (10)
  1. XOLAIR [Suspect]
     Active Substance: OMALIZUMAB
     Indication: Asthma
     Dosage: ?          OTHER DOSE:0.5MLS (75MG);
     Route: 058
  2. XOLAIR [Suspect]
     Active Substance: OMALIZUMAB
     Indication: Asthma
     Dosage: ?          OTHER DOSE:2 SYRS (300MG);
     Route: 058
     Dates: start: 20171220
  3. DUPIXENT [Concomitant]
     Active Substance: DUPILUMAB
  4. ADVAIR DISKU [Concomitant]
  5. ALBUTEROL [Concomitant]
     Active Substance: ALBUTEROL
  6. CETIRIZINE [Concomitant]
     Active Substance: CETIRIZINE HYDROCHLORIDE
  7. EPINEPHRINE [Concomitant]
     Active Substance: EPINEPHRINE
  8. MONTELUKAST [Concomitant]
     Active Substance: MONTELUKAST SODIUM
  9. PREDNISONE [Concomitant]
     Active Substance: PREDNISONE
  10. TRIAMINOLON CRE [Concomitant]

REACTIONS (4)
  - Discomfort [None]
  - Quality of life decreased [None]
  - Condition aggravated [None]
  - Sleep disorder [None]
